FAERS Safety Report 17105410 (Version 1)
Quarter: 2019Q4

REPORT INFORMATION
  Report Type: Spontaneous
  Country: US (occurrence: US)
  Receive Date: 20191203
  Receipt Date: 20191203
  Transmission Date: 20200122
  Serious: Yes (Hospitalization)
  Sender: FDA-Public Use
  Company Number: US-TEVA-2019-US-1146528

PATIENT
  Age: 32 Year
  Sex: Female

DRUGS (11)
  1. PYRIMETHAMINE [Concomitant]
     Active Substance: PYRIMETHAMINE
     Indication: POST TREATMENT LYME DISEASE SYNDROME
     Route: 048
  2. LEUCOVORIN. [Concomitant]
     Active Substance: LEUCOVORIN
     Indication: POST TREATMENT LYME DISEASE SYNDROME
     Route: 048
  3. AZITHROMYCIN ANHYDROUS. [Suspect]
     Active Substance: AZITHROMYCIN ANHYDROUS
     Indication: PNEUMONIA
     Route: 065
  4. MEROPENEM. [Suspect]
     Active Substance: MEROPENEM
     Indication: POST TREATMENT LYME DISEASE SYNDROME
     Route: 042
  5. CIPROFLOXACIN. [Suspect]
     Active Substance: CIPROFLOXACIN
     Indication: POST TREATMENT LYME DISEASE SYNDROME
     Dosage: ADMINISTERED EVERY OTHER DAY
     Route: 065
  6. IVERMECTIN. [Concomitant]
     Active Substance: IVERMECTIN
     Indication: POST TREATMENT LYME DISEASE SYNDROME
     Route: 048
  7. RIFABUTIN. [Suspect]
     Active Substance: RIFABUTIN
     Indication: POST TREATMENT LYME DISEASE SYNDROME
     Route: 048
  8. CLINDAMYCIN. [Suspect]
     Active Substance: CLINDAMYCIN
     Indication: POST TREATMENT LYME DISEASE SYNDROME
     Route: 042
  9. TIGECYCLINE. [Suspect]
     Active Substance: TIGECYCLINE
     Indication: POST TREATMENT LYME DISEASE SYNDROME
     Route: 042
  10. METRONIDAZOLE. [Suspect]
     Active Substance: METRONIDAZOLE
     Indication: POST TREATMENT LYME DISEASE SYNDROME
     Route: 048
  11. MEROPENEM. [Suspect]
     Active Substance: MEROPENEM
     Dosage: ADMINISTERED EVERY OTHER DAY ALONG WITH CIPROFLOXACIN
     Route: 065

REACTIONS (2)
  - Mycobacterial infection [Recovering/Resolving]
  - Pathogen resistance [Unknown]
